FAERS Safety Report 9631596 (Version 4)
Quarter: 2014Q1

REPORT INFORMATION
  Report Type: Spontaneous
  Country: US (occurrence: US)
  Receive Date: 20131018
  Receipt Date: 20140130
  Transmission Date: 20141002
  Serious: No
  Sender: FDA-Public Use
  Company Number: US-PFIZER INC-2013297160

PATIENT
  Age: 74 Year
  Sex: Female

DRUGS (21)
  1. ENBREL [Suspect]
     Dosage: UNK
  2. ZITHROMAX [Suspect]
     Dosage: UNK
  3. REMICADE [Suspect]
     Dosage: UNK
  4. LEXAPRO [Suspect]
     Dosage: UNK
  5. ORENCIA [Suspect]
     Dosage: UNK
  6. PENICILLAMINE [Suspect]
     Dosage: UNK
  7. CIMZIA [Suspect]
     Dosage: UNK
  8. RITUXAN [Suspect]
     Dosage: UNK
  9. ATIVAN [Concomitant]
     Dosage: UNK
  10. WELLBUTRIN [Concomitant]
     Dosage: UNK
  11. FOLIC ACID [Concomitant]
     Dosage: UNK
  12. AMBIEN [Concomitant]
     Dosage: UNK
  13. PROTONIX [Concomitant]
     Dosage: UNK
  14. TRAMADOL [Concomitant]
     Dosage: UNK
  15. FLEXERIL [Concomitant]
     Dosage: UNK
  16. FLONASE [Concomitant]
     Dosage: UNK
  17. VITAMIN D3 [Concomitant]
     Dosage: UNK
  18. OMEGA 3 [Concomitant]
     Dosage: UNK
  19. BABY ASPIRIN [Concomitant]
     Dosage: UNK
  20. CALCIUM [Concomitant]
     Dosage: UNK
  21. TESSALON PERLE [Concomitant]
     Dosage: UNK

REACTIONS (1)
  - Drug hypersensitivity [Unknown]
